FAERS Safety Report 10055929 (Version 1)
Quarter: 2014Q2

REPORT INFORMATION
  Report Type: Spontaneous
  Country: BR (occurrence: None)
  Receive Date: 20140401
  Receipt Date: 20140401
  Transmission Date: 20141212
  Serious: Yes (Other)
  Sender: FDA-Public Use
  Company Number: PAN-2014-000041

PATIENT
  Age: 55 Year
  Sex: Female

DRUGS (3)
  1. TACROLIMUS [Suspect]
     Indication: IMMUNOSUPPRESSANT DRUG THERAPY
  2. PREDNISONE (PREDNISONE) [Suspect]
     Indication: RENAL TRANSPLANT
  3. AZATHIOPRINE (AZATHIOPRINE) [Suspect]
     Indication: RENAL TRANSPLANT

REACTIONS (1)
  - Phaehyphomycosis [None]
